FAERS Safety Report 9265827 (Version 3)
Quarter: 2014Q2

REPORT INFORMATION
  Report Type: Report from Study
  Country: US (occurrence: US)
  Receive Date: 20130501
  Receipt Date: 20140419
  Transmission Date: 20141212
  Serious: Yes (Hospitalization, Other)
  Sender: FDA-Public Use
  Company Number: US-AMGEN-USACT2013028195

PATIENT
  Age: 48 Year
  Sex: Female
  Weight: 63.5 kg

DRUGS (4)
  1. PANITUMUMAB [Suspect]
     Indication: SQUAMOUS CELL CARCINOMA OF LUNG
     Dosage: 159 MG, UNK
     Route: 065
     Dates: start: 20130318, end: 20130408
  2. CARBOPLATIN [Concomitant]
     Indication: SQUAMOUS CELL CARCINOMA OF LUNG
     Dosage: 300 MG, UNK
     Dates: start: 20130318
  3. TAXOL [Concomitant]
     Indication: SQUAMOUS CELL CARCINOMA OF LUNG
     Dosage: 84 MG, UNK
     Dates: start: 20130318
  4. Z-PAK [Concomitant]

REACTIONS (9)
  - Skin infection [Unknown]
  - Lung infection [Recovering/Resolving]
  - Bronchostenosis [Unknown]
  - Sepsis [Unknown]
  - Urinary tract infection [Unknown]
  - Oesophagitis [Unknown]
  - Rectal haemorrhage [Unknown]
  - Lymphocyte count decreased [Recovered/Resolved]
  - White blood cell count decreased [Recovered/Resolved]
